FAERS Safety Report 8080582-1 (Version None)
Quarter: 2012Q1

REPORT INFORMATION
  Report Type: 
  Country: None (occurrence: None)
  Receive Date: 20120130
  Receipt Date: 20120116
  Transmission Date: 20120608
  Serious: Yes (Hospitalization, Other)
  Sender: FDA-Public Use
  Company Number: US-JNJFOC-20120106477

PATIENT
  Sex: Female
  Weight: 100 kg

DRUGS (16)
  1. POTASSIUM CHLORIDE [Concomitant]
     Route: 048
     Dates: start: 20080101
  2. VITAMIN D [Concomitant]
     Route: 048
     Dates: start: 20030601
  3. CALCIUM [Concomitant]
     Route: 048
     Dates: start: 20020501
  4. CHLORTHALIDONE [Concomitant]
     Indication: HYPERTENSION
     Route: 048
     Dates: start: 20000905
  5. LORTAB [Concomitant]
     Route: 048
     Dates: start: 20110101
  6. NAPROXEN [Concomitant]
     Route: 048
  7. PREDNISONE TAB [Concomitant]
     Indication: RHEUMATOID ARTHRITIS
     Route: 048
     Dates: start: 20110329
  8. FOLIC ACID [Concomitant]
     Indication: PROPHYLAXIS
     Route: 048
     Dates: start: 20020301
  9. DIOVAN [Concomitant]
     Indication: HYPERTENSION
     Route: 048
     Dates: start: 20080101
  10. METHOTREXATE [Concomitant]
     Indication: RHEUMATOID ARTHRITIS
     Route: 048
     Dates: start: 20111011
  11. SYNTHROID [Concomitant]
     Indication: HYPOTHYROIDISM
     Route: 048
     Dates: start: 20110401
  12. GOLIMUMAB [Suspect]
     Dosage: SUBCUTANEOUS
     Dates: start: 20110829, end: 20111121
  13. GOLIMUMAB [Suspect]
     Indication: RHEUMATOID ARTHRITIS
     Dosage: INTRAVENOUS
     Dates: start: 20111219, end: 20111219
  14. PLACEBO [Suspect]
     Indication: RHEUMATOID ARTHRITIS
     Route: 058
     Dates: start: 20111219, end: 20111219
  15. MULTI-VITAMINS [Concomitant]
     Route: 048
  16. EXTRA STRENGTH TYLENOL [Concomitant]
     Route: 048

REACTIONS (1)
  - BREAST CANCER [None]
